FAERS Safety Report 15557888 (Version 1)
Quarter: 2018Q4

REPORT INFORMATION
  Report Type: Spontaneous
  Country: NZ (occurrence: NZ)
  Receive Date: 20181027
  Receipt Date: 20181027
  Transmission Date: 20190205
  Serious: Yes (Other)
  Sender: FDA-Public Use
  Company Number: NZ-009507513-1810NZL008397

PATIENT
  Age: 43 Year
  Sex: Female

DRUGS (2)
  1. DINOPROSTONE. [Concomitant]
     Active Substance: DINOPROSTONE
     Indication: ST. LOUIS ENCEPHALITIS
     Dosage: 10 MILLIGRAM, QD
     Route: 067
     Dates: start: 20160921, end: 20160923
  2. CELESTONE CHRONODOSE [Suspect]
     Active Substance: BETAMETHASONE ACETATE\BETAMETHASONE SODIUM PHOSPHATE
     Indication: ST. LOUIS ENCEPHALITIS
     Dosage: 11.4 MG, ONCE
     Route: 030
     Dates: start: 20160921, end: 20160921

REACTIONS (4)
  - Premature separation of placenta [Not Recovered/Not Resolved]
  - Disseminated intravascular coagulation [Not Recovered/Not Resolved]
  - Acute kidney injury [Not Recovered/Not Resolved]
  - Foetal death [Not Recovered/Not Resolved]

NARRATIVE: CASE EVENT DATE: 20160924
